FAERS Safety Report 10090139 (Version 1)
Quarter: 2014Q2

REPORT INFORMATION
  Report Type: Spontaneous
  Country: US (occurrence: None)
  Receive Date: 20140410
  Receipt Date: 20140410
  Transmission Date: 20141212
  Serious: Yes (Other)
  Sender: FDA-Public Use
  Company Number: 1202962

PATIENT
  Age: 71 Year
  Sex: Female

DRUGS (4)
  1. CEFTRIAXONE (CEFTRIAXONE SODIUM) (INJECTION) [Suspect]
     Indication: BACTERIAL SEPSIS
     Dosage: 2 G (2 G, DAILY), INTRAVENOUS (NOT OTHERWISE SPECIFIED)
     Route: 042
  2. ACETAMINOPHEN (ACETAMINOPHEN) [Concomitant]
  3. MEPERIDINE (PETHIDINE HYDRROCHLORIDE) [Concomitant]
  4. HYDROXYZINE (HYDROXYZINE HYDROCHLORIDE) [Concomitant]

REACTIONS (1)
  - Pancreatitis acute [None]
